FAERS Safety Report 22061501 (Version 2)
Quarter: 2024Q1

REPORT INFORMATION
  Report Type: Report from Study
  Country: DE (occurrence: DE)
  Receive Date: 20230304
  Receipt Date: 20240222
  Transmission Date: 20240409
  Serious: Yes (Hospitalization)
  Sender: FDA-Public Use
  Company Number: DE-PFIZER INC-PV202200081790

PATIENT
  Age: 69 Year
  Sex: Female

DRUGS (10)
  1. HUMIRA [Suspect]
     Active Substance: ADALIMUMAB
     Indication: Psoriasis
     Dosage: TIME INTERVAL: CYCLICAL: 40 MG, CYCLIC (EVERY 14 DAYS)
     Route: 058
     Dates: start: 20171213, end: 20220918
  2. CERAMOL C311 [Concomitant]
     Indication: Drug hypersensitivity
     Dosage: UNK
  3. HYDROCHLOROTHIAZIDE\VALSARTAN [Concomitant]
     Active Substance: HYDROCHLOROTHIAZIDE\VALSARTAN
     Indication: Hypertension
     Dosage: 80/12.5, FOR ABOUT 4 YEARS, EVERY 1 DAYS
  4. MOMETASONE FUROATE [Concomitant]
     Active Substance: MOMETASONE FUROATE
     Indication: Drug hypersensitivity
     Dosage: UNK
  5. CELECOXIB [Concomitant]
     Active Substance: CELECOXIB
     Indication: Arthropathy
     Dosage: 100 MG (EVERY 1 DAYS)
  6. MODERNA COVID-19 VACCINE [Suspect]
     Active Substance: ELASOMERAN
     Indication: COVID-19 immunisation
     Dosage: TIME INTERVAL: TOTAL: DOSE 3 (BOOSTER), SINGLE
     Route: 030
     Dates: start: 20211203, end: 20211203
  7. DESLORATADINE [Concomitant]
     Active Substance: DESLORATADINE
     Indication: Drug hypersensitivity
     Dosage: UNK
  8. DIMETHINDENE [Concomitant]
     Active Substance: DIMETHINDENE
     Indication: Drug hypersensitivity
     Dosage: UNK
  9. TOZINAMERAN [Suspect]
     Active Substance: TOZINAMERAN
     Indication: COVID-19 immunisation
     Dosage: TIME INTERVAL: TOTAL: DOSE 1, SINGLE
     Route: 030
     Dates: start: 20210115, end: 20210115
  10. TOZINAMERAN [Suspect]
     Active Substance: TOZINAMERAN
     Indication: COVID-19 immunisation
     Dosage: TIME INTERVAL: TOTAL: DOSE 2, SINGLE
     Route: 030
     Dates: start: 20210205, end: 20210205

REACTIONS (9)
  - Interchange of vaccine products [Unknown]
  - Blood pressure systolic increased [Unknown]
  - Urticaria [Not Recovered/Not Resolved]
  - Intervertebral disc protrusion [Not Recovered/Not Resolved]
  - Finger deformity [Not Recovered/Not Resolved]
  - Hypertension [Not Recovered/Not Resolved]
  - Allergy to vaccine [Not Recovered/Not Resolved]
  - Psoriasis [Not Recovered/Not Resolved]
  - Osteoarthritis [Recovering/Resolving]

NARRATIVE: CASE EVENT DATE: 20180101
